FAERS Safety Report 10119934 (Version 1)
Quarter: 2014Q2

REPORT INFORMATION
  Report Type: Spontaneous
  Country: US (occurrence: US)
  Receive Date: 20140425
  Receipt Date: 20140425
  Transmission Date: 20141212
  Serious: Yes (Other)
  Sender: FDA-Public Use
  Company Number: US-PFIZER INC-2014114028

PATIENT
  Age: 76 Year
  Sex: Female
  Weight: 79 kg

DRUGS (14)
  1. CELEBREX [Suspect]
     Dosage: UNK
  2. ALENDRONATE [Suspect]
     Indication: OSTEOPOROSIS
     Dosage: 70 MG, WEEKLY
     Route: 048
     Dates: start: 20140326
  3. PREDNISONE [Suspect]
     Dosage: 15 MG, 1X/DAY
     Route: 048
     Dates: start: 2012
  4. PREDNISONE [Suspect]
     Dosage: 12.5 MG, 1X/DAY
     Route: 048
     Dates: start: 20140326
  5. LOSARTAN [Concomitant]
     Dosage: UNK, 50 - 12.5 MG
     Route: 048
  6. POTASSIUM [Concomitant]
     Dosage: 10 MEQ 2 TABLETS ORALLY IN THE MORNING AND 2 TABLETS WITH DINNER
     Route: 048
  7. LASIX [Concomitant]
     Dosage: 40 MG, AS DIRECTED PER INR
     Route: 048
  8. WARFARIN [Concomitant]
     Dosage: UNK
  9. CARVEDILOL [Concomitant]
     Dosage: 3.125 MG, AT BEDTIME
     Route: 048
  10. ALLOPURINOL [Concomitant]
     Dosage: 100 MG, 1X/DAY
     Route: 048
  11. CALCIUM [Concomitant]
     Dosage: 600 MG, 1X/DAY
     Route: 048
  12. TYLENOL [Concomitant]
     Dosage: UNK
     Route: 048
  13. VALIUM [Concomitant]
     Dosage: 5 MG, AS NEEDED
     Route: 048
  14. MIRALAX [Concomitant]
     Indication: CONSTIPATION
     Dosage: 238 MG, AS NEEDED

REACTIONS (5)
  - Cardiac failure congestive [Unknown]
  - Nephropathy [Unknown]
  - Gout [Unknown]
  - Myalgia [Unknown]
  - Constipation [Not Recovered/Not Resolved]
